FAERS Safety Report 25628578 (Version 3)
Quarter: 2025Q3

REPORT INFORMATION
  Report Type: Report from Study
  Country: US (occurrence: US)
  Receive Date: 20250731
  Receipt Date: 20250813
  Transmission Date: 20251021
  Serious: Yes (Other)
  Sender: MYLAN
  Company Number: US-MYLANLABS-2025M1063018

PATIENT
  Sex: Female

DRUGS (2)
  1. RELPAX [Suspect]
     Active Substance: ELETRIPTAN HYDROBROMIDE
     Indication: Migraine
  2. FENTANYL [Suspect]
     Active Substance: FENTANYL
     Indication: Migraine

REACTIONS (4)
  - Premature delivery [Recovered/Resolved]
  - Prenatal screening test abnormal [Recovered/Resolved]
  - Off label use [Unknown]
  - Maternal exposure during pregnancy [Recovered/Resolved]

NARRATIVE: CASE EVENT DATE: 20250505
